FAERS Safety Report 12453408 (Version 1)
Quarter: 2016Q2

REPORT INFORMATION
  Report Type: Report from Study
  Country: BR (occurrence: BR)
  Receive Date: 20160609
  Receipt Date: 20160609
  Transmission Date: 20160815
  Serious: Yes (Death)
  Sender: FDA-Public Use
  Company Number: PHHY2016BR079546

PATIENT
  Sex: Male

DRUGS (1)
  1. FORASEQ [Suspect]
     Active Substance: BUDESONIDE\FORMOTEROL FUMARATE
     Indication: CHRONIC OBSTRUCTIVE PULMONARY DISEASE
     Dosage: 1 DF (BUDESONIDE 12 UG, FORMOTEROL FUMARATE 400 UG), BID (TWICE A DAY)
     Route: 055

REACTIONS (1)
  - Multiple organ dysfunction syndrome [Fatal]
